FAERS Safety Report 21502180 (Version 1)
Quarter: 2022Q4

REPORT INFORMATION
  Report Type: Report from Study
  Country: US (occurrence: US)
  Receive Date: 20221025
  Receipt Date: 20221025
  Transmission Date: 20230113
  Serious: No
  Sender: FDA-Public Use
  Company Number: US-KADMON-US-KAD-22-00666

PATIENT
  Sex: Male

DRUGS (1)
  1. BELUMOSUDIL [Suspect]
     Active Substance: BELUMOSUDIL
     Indication: Product used for unknown indication
     Dosage: 200 MG
     Route: 065
     Dates: start: 20220127

REACTIONS (8)
  - Abdominal distension [Unknown]
  - Pollakiuria [Unknown]
  - Urinary incontinence [Unknown]
  - Depression [Unknown]
  - Decreased interest [Unknown]
  - Hypokinesia [Unknown]
  - Limb discomfort [Unknown]
  - Dyspnoea [Unknown]
